FAERS Safety Report 25874267 (Version 2)
Quarter: 2025Q4

REPORT INFORMATION
  Report Type: Spontaneous
  Country: US (occurrence: US)
  Receive Date: 20251002
  Receipt Date: 20251208
  Transmission Date: 20260117
  Serious: Yes (Hospitalization, Other)
  Sender: ELI LILLY AND COMPANY
  Company Number: US-ELI_LILLY_AND_COMPANY-US202509021668

PATIENT
  Age: 62 Year
  Sex: Female

DRUGS (32)
  1. MOUNJARO [Suspect]
     Active Substance: TIRZEPATIDE
     Indication: Type 2 diabetes mellitus
     Dosage: 2.5 MG, WEEKLY (1/W)
     Route: 065
     Dates: start: 20240124, end: 20241030
  2. MOUNJARO [Suspect]
     Active Substance: TIRZEPATIDE
     Indication: Type 2 diabetes mellitus
     Dosage: 2.5 MG, WEEKLY (1/W)
     Route: 065
     Dates: start: 20240124, end: 20241030
  3. OZEMPIC [Suspect]
     Active Substance: SEMAGLUTIDE
     Indication: Type 2 diabetes mellitus
     Dosage: 0.25 MG, WEEKLY (1/W)
     Route: 065
     Dates: start: 20220601, end: 20221208
  4. OZEMPIC [Suspect]
     Active Substance: SEMAGLUTIDE
     Dosage: 1 MG, WEEKLY (1/W)
     Route: 065
     Dates: start: 20221208, end: 20240219
  5. METFORMIN [Concomitant]
     Active Substance: METFORMIN HYDROCHLORIDE
     Indication: Type 2 diabetes mellitus
     Dosage: 500 MG, UNKNOWN
     Dates: start: 20230101, end: 20240801
  6. INSULIN NOS [Concomitant]
     Active Substance: INSULIN NOS
     Indication: Type 2 diabetes mellitus
     Dosage: UNK
     Dates: start: 20160101, end: 20240219
  7. SYNJARDY [Concomitant]
     Active Substance: EMPAGLIFLOZIN\METFORMIN HYDROCHLORIDE
     Indication: Type 2 diabetes mellitus
     Dosage: 1000 MG, BID
     Dates: start: 20251010
  8. FARXIGA [Concomitant]
     Active Substance: DAPAGLIFLOZIN PROPANEDIOL
     Indication: Type 2 diabetes mellitus
     Dosage: 10 MG, UNKNOWN
     Dates: start: 20240101, end: 20240801
  9. ALBUTEROL SULFATE [Concomitant]
     Active Substance: ALBUTEROL SULFATE
     Indication: Bronchitis
     Dosage: UNK
     Dates: start: 20200101, end: 20230914
  10. AMLODIPINE [Concomitant]
     Active Substance: AMLODIPINE BESYLATE
     Indication: Cardiac disorder
     Dosage: 5 MG, DAILY
     Dates: start: 20201010, end: 20230914
  11. CYCLOBENZAPRINE [Concomitant]
     Active Substance: CYCLOBENZAPRINE
     Indication: Myalgia
     Dosage: 10 MG, TID
     Dates: start: 20200101
  12. CYMBALTA [Concomitant]
     Active Substance: DULOXETINE HYDROCHLORIDE
     Indication: Depression
     Dosage: 30 MG, DAILY
     Dates: start: 20241107
  13. DULOXETINE [Concomitant]
     Active Substance: DULOXETINE
     Indication: Antidepressant therapy
     Dosage: 30 MG, DAILY
     Route: 048
     Dates: start: 20240101, end: 20250412
  14. ESTRADIOL [Concomitant]
     Active Substance: ESTRADIOL
     Indication: Vulvovaginal dryness
     Dosage: UNK
     Dates: start: 20251010
  15. HYDROMORPHONE HCL [Concomitant]
     Active Substance: HYDROMORPHONE HYDROCHLORIDE
     Indication: Back pain
     Dosage: 2 MG, UNKNOWN
     Route: 048
     Dates: start: 20160101, end: 20251107
  16. METOPROLOL TARTRATE [Concomitant]
     Active Substance: METOPROLOL TARTRATE
     Indication: Cardiac disorder
     Dosage: 75 MG, UNKNOWN
     Dates: start: 20200101
  17. ATORVASTATIN [Concomitant]
     Active Substance: ATORVASTATIN
     Indication: Blood cholesterol
     Dosage: 80 MG, UNKNOWN
     Dates: start: 20220101, end: 20250101
  18. PREDNISONE [Concomitant]
     Active Substance: PREDNISONE
     Indication: Inflammation
     Dosage: 10 MG, UNKNOWN
     Dates: start: 20240101, end: 20250101
  19. SYNTHROID [Concomitant]
     Active Substance: LEVOTHYROXINE SODIUM
     Indication: Thyroidectomy
     Dosage: 150 UG, UNKNOWN
     Dates: start: 20220101
  20. PANTOPRAZOLE [Concomitant]
     Active Substance: PANTOPRAZOLE
     Indication: Gastritis
     Dosage: UNK
     Dates: start: 20230101, end: 20240101
  21. PANTOPRAZOLE [Concomitant]
     Active Substance: PANTOPRAZOLE
     Indication: Impaired gastric emptying
  22. ESZOPICLONE [Concomitant]
     Active Substance: ESZOPICLONE
     Indication: Insomnia
     Dosage: 1 MG, UNKNOWN
     Dates: start: 20230101, end: 20240101
  23. METOCLOPRAMIDE HYDROCHLORIDE [Concomitant]
     Active Substance: METOCLOPRAMIDE HYDROCHLORIDE
     Indication: Impaired gastric emptying
     Dosage: UNK
     Dates: start: 20231206
  24. GABAPENTIN [Concomitant]
     Active Substance: GABAPENTIN
     Indication: Neuralgia
     Dosage: UNK
     Dates: start: 20221201, end: 20241201
  25. BUSPIRONE [Concomitant]
     Active Substance: BUSPIRONE HYDROCHLORIDE
     Indication: Anxiety
     Dosage: 10 MG, UNKNOWN
     Dates: start: 20231226
  26. DOCUSATE SODIUM [Concomitant]
     Active Substance: DOCUSATE SODIUM
     Indication: Laxative supportive care
     Dosage: 100 MG, UNKNOWN
     Dates: start: 20241107
  27. LACTULOSE [Concomitant]
     Active Substance: LACTULOSE
     Indication: Laxative supportive care
     Dosage: 20 MG, UNKNOWN
     Dates: start: 20241121
  28. LIPITOR [Concomitant]
     Active Substance: ATORVASTATIN CALCIUM
     Indication: Blood cholesterol
     Dosage: 80 MG, UNKNOWN
     Dates: start: 20241111
  29. NEURONTIN [Concomitant]
     Active Substance: GABAPENTIN
     Indication: Neuralgia
     Dosage: 600 MG, UNKNOWN
     Dates: start: 20250101
  30. OMEPRAZOLE [Concomitant]
     Active Substance: OMEPRAZOLE
     Indication: Gastrooesophageal reflux disease
     Dosage: 40 MG, UNKNOWN
     Dates: start: 20241107
  31. OMEPRAZOLE [Concomitant]
     Active Substance: OMEPRAZOLE
     Indication: Abdominal discomfort
  32. ASPIRIN [Concomitant]
     Active Substance: ASPIRIN
     Indication: Anticoagulant therapy
     Dosage: 81 MG, UNKNOWN
     Route: 048
     Dates: start: 20240101

REACTIONS (20)
  - Enteritis [Unknown]
  - Gastritis [Unknown]
  - Feeding disorder [Unknown]
  - Blood glucose abnormal [Unknown]
  - Quality of life decreased [Unknown]
  - Ileus [Recovered/Resolved]
  - Malnutrition [Not Recovered/Not Resolved]
  - Weight decreased [Unknown]
  - Pancreatitis [Not Recovered/Not Resolved]
  - Dehydration [Recovered/Resolved]
  - Decreased appetite [Not Recovered/Not Resolved]
  - Impaired gastric emptying [Not Recovered/Not Resolved]
  - Vomiting [Not Recovered/Not Resolved]
  - Dyspepsia [Not Recovered/Not Resolved]
  - Diarrhoea [Not Recovered/Not Resolved]
  - Abdominal distension [Unknown]
  - Abdominal pain [Not Recovered/Not Resolved]
  - Gastrooesophageal reflux disease [Unknown]
  - Nausea [Not Recovered/Not Resolved]
  - Constipation [Not Recovered/Not Resolved]

NARRATIVE: CASE EVENT DATE: 20161223
